FAERS Safety Report 17647998 (Version 1)
Quarter: 2020Q2

REPORT INFORMATION
  Report Type: Spontaneous
  Country: US (occurrence: US)
  Receive Date: 20200408
  Receipt Date: 20200408
  Transmission Date: 20200713
  Serious: Yes (Other)
  Sender: FDA-Public Use
  Company Number: US-MALLINCKRODT-T202001599

PATIENT
  Sex: Male

DRUGS (2)
  1. UVADEX [Suspect]
     Active Substance: METHOXSALEN
     Indication: CUTANEOUS T-CELL LYMPHOMA STAGE IV
     Dosage: UNK, EXTRACORPOREAL
     Route: 050
  2. METHOTREXATE. [Suspect]
     Active Substance: METHOTREXATE
     Indication: CUTANEOUS T-CELL LYMPHOMA STAGE IV
     Dosage: 17.5 MILLIGRAM, WEEKLY
     Route: 065

REACTIONS (1)
  - Cutaneous T-cell lymphoma [Unknown]
